FAERS Safety Report 14873255 (Version 3)
Quarter: 2019Q3

REPORT INFORMATION
  Report Type: Spontaneous
  Country: US (occurrence: US)
  Receive Date: 20180510
  Receipt Date: 20190822
  Transmission Date: 20191004
  Serious: Yes (Other)
  Sender: FDA-Public Use
  Company Number: US-UCBSA-2017043686

PATIENT
  Age: 30 Year
  Sex: Female

DRUGS (1)
  1. CIMZIA [Suspect]
     Active Substance: CERTOLIZUMAB PEGOL
     Indication: PRODUCT USED FOR UNKNOWN INDICATION
     Dosage: 6X200MG/ML  NDC-50474071079
     Dates: start: 201710

REACTIONS (6)
  - Crohn^s disease [Not Recovered/Not Resolved]
  - Rash generalised [Unknown]
  - Upper respiratory tract infection [Unknown]
  - Contusion [Unknown]
  - Stomatitis [Unknown]
  - Maternal exposure during pregnancy [Unknown]

NARRATIVE: CASE EVENT DATE: 20171024
